FAERS Safety Report 14269382 (Version 1)
Quarter: 2017Q4

REPORT INFORMATION
  Report Type: Spontaneous
  Country: JP (occurrence: JP)
  Receive Date: 20171211
  Receipt Date: 20171211
  Transmission Date: 20180321
  Serious: Yes (Hospitalization)
  Sender: FDA-Public Use
  Company Number: JP-PFIZER INC-2017521269

PATIENT
  Age: 64 Year
  Sex: Male
  Weight: 81.4 kg

DRUGS (8)
  1. MEROPENEM. [Suspect]
     Active Substance: MEROPENEM
     Indication: ABSCESS NECK
     Dosage: 3 G, DAILY
     Route: 041
     Dates: start: 20170919, end: 20170922
  2. FAMOTIDINE. [Suspect]
     Active Substance: FAMOTIDINE
     Indication: GASTROINTESTINAL HAEMORRHAGE
     Dosage: 40 MG, 1X/DAY
     Route: 048
     Dates: start: 20170920, end: 20170921
  3. LANSOPRAZOLE. [Suspect]
     Active Substance: LANSOPRAZOLE
     Indication: GASTROINTESTINAL HAEMORRHAGE
     Dosage: 30 MG, 1X/DAY
     Route: 048
     Dates: start: 20170921, end: 20170922
  4. CLINDAMYCIN. [Suspect]
     Active Substance: CLINDAMYCIN
     Indication: ABSCESS NECK
     Dosage: 2400 MG, 1X/DAY
     Route: 042
     Dates: start: 20170919, end: 20170921
  5. OLANZAPINE. [Suspect]
     Active Substance: OLANZAPINE
     Indication: BIPOLAR DISORDER
     Dosage: 10 MG, 1X/DAY
     Route: 048
     Dates: start: 20170919, end: 20170926
  6. ANAEMETRO 500MG [Suspect]
     Active Substance: METRONIDAZOLE
     Indication: ABSCESS NECK
     Dosage: 1500 MG, 1X/DAY
     Route: 041
     Dates: start: 20170919, end: 20170920
  7. FENTANYL. [Concomitant]
     Active Substance: FENTANYL
     Dosage: UNK
     Dates: start: 20170919, end: 20170927
  8. PENICILLIN G POTASSIUM. [Suspect]
     Active Substance: PENICILLIN G POTASSIUM
     Indication: ABSCESS NECK
     Dosage: 24000000 UNITS
     Route: 042
     Dates: start: 20170919, end: 20170920

REACTIONS (3)
  - Papule [Recovering/Resolving]
  - Drug eruption [Recovering/Resolving]
  - Erythema [Recovering/Resolving]

NARRATIVE: CASE EVENT DATE: 20170920
